FAERS Safety Report 7508816-X (Version None)
Quarter: 2011Q2

REPORT INFORMATION
  Report Type: 
  Country: None (occurrence: None)
  Receive Date: 20110527
  Receipt Date: 20110518
  Transmission Date: 20111010
  Serious: Yes (Other)
  Sender: FDA-Public Use
  Company Number: US-BAYER-201031090NA

PATIENT
  Sex: Male
  Weight: 95.238 kg

DRUGS (12)
  1. TRASYLOL [Suspect]
     Indication: CARDIAC OPERATION
  2. PENICILLIN G [Concomitant]
     Indication: PNEUMOCOCCAL BACTERAEMIA
     Route: 042
  3. TRASYLOL [Suspect]
     Indication: TRICUSPID VALVE REPAIR
  4. RED BLOOD CELLS [Concomitant]
     Indication: AORTIC VALVE REPLACEMENT
     Dosage: 4 UNITS
     Dates: start: 20041011
  5. FRESH FROZEN PLASMA [Concomitant]
     Indication: AORTIC VALVE REPLACEMENT
  6. TRASYLOL [Suspect]
     Indication: AORTIC VALVE REPLACEMENT
     Dosage: 200ML , FOLLOWED BY 50ML /HR; PER PERFUSION RECORD 800 (UNITS NOT
     Dates: start: 20041011, end: 20041011
  7. RED BLOOD CELLS [Concomitant]
     Indication: TRICUSPID VALVE REPAIR
  8. HEPARIN [Concomitant]
     Indication: AORTIC VALVE REPLACEMENT
     Dosage: UNK
     Route: 042
     Dates: start: 20041011
  9. HEPARIN [Concomitant]
     Indication: TRICUSPID VALVE REPAIR
  10. FRESH FROZEN PLASMA [Concomitant]
     Indication: TRICUSPID VALVE REPAIR
  11. GENTAMYCIN SULFATE [Concomitant]
     Indication: PNEUMOCOCCAL BACTERAEMIA
     Route: 042
  12. ASPIRIN [Concomitant]
     Dosage: 81 MG, UNK
     Route: 048

REACTIONS (11)
  - MULTI-ORGAN FAILURE [None]
  - EMOTIONAL DISTRESS [None]
  - RENAL IMPAIRMENT [None]
  - RENAL INJURY [None]
  - ANXIETY [None]
  - STRESS [None]
  - UNEVALUABLE EVENT [None]
  - ARTERIAL RUPTURE [None]
  - RENAL FAILURE [None]
  - FEAR [None]
  - PAIN [None]
